FAERS Safety Report 9271999 (Version 1)
Quarter: 2013Q2

REPORT INFORMATION
  Report Type: Spontaneous
  Country: US (occurrence: US)
  Receive Date: 20130506
  Receipt Date: 20130506
  Transmission Date: 20140414
  Serious: No
  Sender: FDA-Public Use
  Company Number: US-009507513-1304USA016634

PATIENT
  Sex: Male

DRUGS (3)
  1. VICTRELIS [Suspect]
     Dosage: TAKE 4 CAPSULES (800MG) BY MOUTH THREE TIMES A DAY (EVERY 7-9 HOURS) START ON WEEKS
     Route: 048
  2. PEG-INTRON [Suspect]
  3. REBETOL [Suspect]
     Route: 048

REACTIONS (2)
  - Fatigue [Unknown]
  - Decreased appetite [Unknown]
